FAERS Safety Report 23046974 (Version 1)
Quarter: 2023Q4

REPORT INFORMATION
  Report Type: Report from Study
  Country: CA (occurrence: CA)
  Receive Date: 20231009
  Receipt Date: 20231009
  Transmission Date: 20240109
  Serious: Yes (Other)
  Sender: FDA-Public Use
  Company Number: CA-002147023-NVSC2023CA013758

PATIENT
  Age: 35 Year
  Sex: Female

DRUGS (1)
  1. HYRIMOZ [Suspect]
     Active Substance: ADALIMUMAB-ADAZ
     Indication: Ankylosing spondylitis
     Dosage: 40 MG
     Route: 058
     Dates: start: 20221229

REACTIONS (8)
  - Gingival pain [Recovered/Resolved]
  - Myocarditis [Recovered/Resolved]
  - Noninfective encephalitis [Recovered/Resolved]
  - Noninfective gingivitis [Recovered/Resolved]
  - Palpitations [Recovered/Resolved]
  - Nasopharyngitis [Recovered/Resolved]
  - Rash [Recovered/Resolved]
  - Gastroenteritis [Recovered/Resolved]
